FAERS Safety Report 6483653-6 (Version None)
Quarter: 2009Q4

REPORT INFORMATION
  Report Type: 
  Country: None (occurrence: None)
  Receive Date: 20091209
  Receipt Date: 20091204
  Transmission Date: 20100525
  Serious: Yes (Death)
  Sender: FDA-Public Use
  Company Number: PHHY2009IE44400

PATIENT
  Sex: Male

DRUGS (2)
  1. CLOZARIL [Suspect]
     Indication: SCHIZOPHRENIA
     Dosage: UNK
     Dates: start: 20080430
  2. METHADONE [Suspect]

REACTIONS (4)
  - ALCOHOL POISONING [None]
  - ASPIRATION [None]
  - NARCOTIC INTOXICATION [None]
  - TREATMENT NONCOMPLIANCE [None]
